FAERS Safety Report 10251514 (Version 1)
Quarter: 2014Q2

REPORT INFORMATION
  Report Type: Spontaneous
  Country: US (occurrence: US)
  Receive Date: 20140623
  Receipt Date: 20140623
  Transmission Date: 20141212
  Serious: Yes (Other)
  Sender: FDA-Public Use
  Company Number: US-AMGEN-USASP2014045682

PATIENT
  Age: 83 Year
  Sex: Female

DRUGS (1)
  1. ENBREL [Suspect]
     Indication: RHEUMATOID ARTHRITIS
     Dosage: 50 MG, QWK
     Route: 065
     Dates: start: 1997

REACTIONS (5)
  - Glaucoma [Not Recovered/Not Resolved]
  - Hyperkeratosis [Not Recovered/Not Resolved]
  - Bowel movement irregularity [Not Recovered/Not Resolved]
  - Skin disorder [Not Recovered/Not Resolved]
  - Skin infection [Not Recovered/Not Resolved]
